FAERS Safety Report 8983961 (Version 2)
Quarter: 2013Q1

REPORT INFORMATION
  Report Type: Spontaneous
  Country: US (occurrence: None)
  Receive Date: 20121212
  Receipt Date: 20121220
  Transmission Date: 20140127
  Serious: Yes (Hospitalization)
  Sender: FDA-Public Use
  Company Number: DKLU1086827

PATIENT
  Age: 4 Year
  Sex: Female

DRUGS (1)
  1. SABRIL [Suspect]
     Indication: INFANTILE SPASMS
     Dates: start: 20100121

REACTIONS (2)
  - Pneumonia aspiration [None]
  - Respiratory tract infection viral [None]
